FAERS Safety Report 9055829 (Version 4)
Quarter: 2013Q2

REPORT INFORMATION
  Report Type: Report from Study
  Country: US (occurrence: US)
  Receive Date: 20130206
  Receipt Date: 20130405
  Transmission Date: 20140414
  Serious: Yes (Life-Threatening, Hospitalization)
  Sender: FDA-Public Use
  Company Number: US-GILEAD-2013-0068743

PATIENT
  Age: 57 Year
  Sex: Male

DRUGS (22)
  1. ELVITEGRAVIR [Suspect]
     Indication: HIV INFECTION
     Dosage: 150 MG, QD
     Route: 048
     Dates: start: 20100731
  2. NORVIR [Suspect]
     Indication: HIV INFECTION
     Dosage: 100 MG, UNK
     Route: 048
     Dates: start: 20070601
  3. VIREAD [Concomitant]
     Dosage: UNK
     Dates: start: 20090611
  4. EMTRIVA [Concomitant]
  5. SELZENTRY [Concomitant]
     Dosage: UNK
     Dates: start: 20070601
  6. PREZISTA [Concomitant]
     Dosage: UNK
     Dates: start: 20070601
  7. GABAPENTIN [Concomitant]
     Indication: NEURALGIA
     Dosage: UNK
     Dates: start: 200504
  8. BACTRIM [Concomitant]
     Indication: ANTIFUNGAL PROPHYLAXIS
     Dosage: UNK
     Dates: start: 20030317
  9. MOMETASONE [Concomitant]
     Indication: SKIN IRRITATION
     Dosage: UNK
     Dates: start: 200512
  10. KETOCONAZOLE [Concomitant]
     Indication: DANDRUFF
     Dosage: UNK
     Dates: start: 20030317
  11. FAMVIR                             /01226201/ [Concomitant]
     Indication: ANTIVIRAL PROPHYLAXIS
     Dosage: UNK
     Dates: start: 20021217
  12. NEPRO [Concomitant]
     Indication: ROUTINE HEALTH MAINTENANCE
     Dosage: UNK
     Dates: start: 200802
  13. LAMISIL                            /00992601/ [Concomitant]
     Indication: FUNGAL SKIN INFECTION
     Dosage: UNK
     Dates: start: 20070727
  14. VICODIN [Concomitant]
     Indication: NEURALGIA
     Dosage: UNK
     Dates: start: 20070914
  15. EPO [Concomitant]
  16. ALKA-SELTZER                       /00002701/ [Concomitant]
     Indication: DYSPEPSIA
     Dosage: UNK
     Dates: start: 20080428
  17. FUROSEMIDE [Concomitant]
     Indication: RENAL FAILURE
     Dosage: UNK
     Dates: start: 20090909
  18. FOLIC ACID [Concomitant]
     Dosage: UNK
     Dates: start: 20121031
  19. CYANOCOBALAMIN [Concomitant]
     Dosage: UNK
     Dates: start: 20120823
  20. HECTOROL [Concomitant]
     Dosage: UNK
     Dates: start: 20120827
  21. ZOVIRAX                            /00587301/ [Concomitant]
     Dosage: UNK
     Dates: start: 20111026
  22. LASIX                              /00032601/ [Concomitant]

REACTIONS (2)
  - Pneumonia [Recovered/Resolved]
  - Renal failure chronic [Not Recovered/Not Resolved]
